FAERS Safety Report 20248024 (Version 2)
Quarter: 2022Q1

REPORT INFORMATION
  Report Type: Report from Study
  Country: IT (occurrence: IT)
  Receive Date: 20211229
  Receipt Date: 20220104
  Transmission Date: 20220424
  Serious: Yes (Disabling, Other)
  Sender: FDA-Public Use
  Company Number: IT-BRISTOL-MYERS SQUIBB COMPANY-BMS-2021-140334

PATIENT
  Age: 65 Year
  Sex: Female
  Weight: 62 kg

DRUGS (5)
  1. NIVOLUMAB [Suspect]
     Active Substance: NIVOLUMAB
     Indication: Breast cancer
     Dosage: 100 MILLILITER
     Route: 042
     Dates: start: 20210415, end: 20210909
  2. PACLITAXEL [Suspect]
     Active Substance: PACLITAXEL
     Indication: Breast cancer
     Dosage: 128.8 MILLIGRAM
     Route: 042
     Dates: start: 20210415, end: 20210701
  3. EPIRUBICIN HYDROCHLORIDE [Suspect]
     Active Substance: EPIRUBICIN HYDROCHLORIDE
     Indication: Breast cancer
     Dosage: 144.9 MILLIGRAM
     Route: 042
     Dates: start: 20210708, end: 20210909
  4. CYCLOPHOSPHAMIDE [Suspect]
     Active Substance: CYCLOPHOSPHAMIDE
     Indication: Breast cancer
     Dosage: 966 MILLIGRAM
     Route: 042
     Dates: start: 20210708, end: 20210909
  5. ASPIRIN [Concomitant]
     Active Substance: ASPIRIN
     Indication: Prophylaxis
     Dosage: 100 MILLIGRAM
     Route: 048
     Dates: start: 20210305

REACTIONS (1)
  - Cardiac perfusion defect [Not Recovered/Not Resolved]

NARRATIVE: CASE EVENT DATE: 20211008
